FAERS Safety Report 5527843-5 (Version None)
Quarter: 2007Q4

REPORT INFORMATION
  Report Type: 
  Country: None (occurrence: None)
  Receive Date: 20071128
  Receipt Date: 20071119
  Transmission Date: 20080405
  Serious: Yes (Hospitalization)
  Sender: FDA-Public Use
  Company Number: US-ELI_LILLY_AND_COMPANY-US200711003155

PATIENT
  Sex: Female
  Weight: 87.4 kg

DRUGS (10)
  1. BYETTA [Suspect]
     Dosage: 5 UG, 2/D
     Route: 065
     Dates: start: 20070313, end: 20070415
  2. BYETTA [Suspect]
     Dosage: 10 UG, 2/D
     Route: 065
     Dates: start: 20070415, end: 20071109
  3. ASPIRIN [Concomitant]
     Dosage: 81 MG, DAILY (1/D)
     Route: 065
     Dates: start: 20040112
  4. ATENOLOL [Concomitant]
     Dosage: 50 MG, DAILY (1/D)
     Route: 065
     Dates: start: 20040826
  5. DYAZIDE [Concomitant]
     Dosage: UNK, DAILY (1/D)
     Route: 065
     Dates: start: 20061001
  6. CALCIUM [Concomitant]
     Dosage: 600 MG, 2/D
     Route: 065
     Dates: start: 20040101
  7. LEXAPRO [Concomitant]
     Dosage: 20 MG, DAILY (1/D)
     Dates: start: 20051228
  8. PREVACID [Concomitant]
     Dosage: 30 MG, DAILY (1/D)
     Route: 065
     Dates: start: 20041212
  9. METFORMIN HCL [Concomitant]
     Dosage: 1000 MG, 2/D
     Dates: start: 20061016
  10. GEMFIBROZIL [Concomitant]
     Dosage: 600 MG, 2/D
     Route: 065
     Dates: start: 20061026

REACTIONS (5)
  - ABDOMINAL PAIN [None]
  - CHOLELITHIASIS [None]
  - NAUSEA [None]
  - PANCREATITIS [None]
  - WEIGHT DECREASED [None]
